FAERS Safety Report 6918783-5 (Version None)
Quarter: 2010Q3

REPORT INFORMATION
  Report Type: 
  Country: None (occurrence: None)
  Receive Date: 20100811
  Receipt Date: 20100804
  Transmission Date: 20110219
  Serious: Yes (Hospitalization)
  Sender: FDA-Public Use
  Company Number: DE-JNJFOC-20100702906

PATIENT
  Sex: Female
  Weight: 62 kg

DRUGS (7)
  1. REMINYL [Suspect]
     Indication: DEMENTIA ALZHEIMER'S TYPE
     Route: 048
     Dates: start: 20081117
  2. NEXIUM [Interacting]
     Indication: GASTRITIS
     Route: 048
     Dates: start: 20090817
  3. MADOPAR [Interacting]
     Indication: PARKINSON'S DISEASE
     Route: 065
     Dates: start: 20060731
  4. UNKNOWN MEDICATION [Interacting]
     Indication: HYPERTHYROIDISM
     Route: 065
  5. DELIX 5 PLUS [Interacting]
     Indication: PRODUCT USED FOR UNKNOWN INDICATION
     Route: 065
  6. LACTRASE [Interacting]
     Indication: PRODUCT USED FOR UNKNOWN INDICATION
     Route: 065
  7. VIGANTOLETTEN [Interacting]
     Indication: OSTEOPOROSIS
     Route: 048

REACTIONS (3)
  - DRUG INTERACTION [None]
  - FATIGUE [None]
  - RESTLESSNESS [None]
